FAERS Safety Report 4574420-9 (Version None)
Quarter: 2005Q1

REPORT INFORMATION
  Report Type: 
  Country: None (occurrence: None)
  Receive Date: 20050208
  Receipt Date: 20040817
  Transmission Date: 20050727
  Serious: No
  Sender: FDA-Public Use
  Company Number: B0342967

PATIENT
  Age: 32 Year
  Sex: Female

DRUGS (1)
  1. DEROXATE [Suspect]
     Indication: DEPRESSION

REACTIONS (1)
  - GASTROINTESTINAL DISORDER [None]
